FAERS Safety Report 5419079-3 (Version None)
Quarter: 2007Q3

REPORT INFORMATION
  Report Type: 
  Country: None (occurrence: None)
  Receive Date: 20070817
  Receipt Date: 20070817
  Transmission Date: 20080115
  Serious: No
  Sender: FDA-Public Use
  Company Number: None

PATIENT
  Age: 82 Year
  Sex: Male

DRUGS (2)
  1. TAMSULOSIN HCL [Suspect]
     Dosage: 0.4MG HS PO
     Route: 048
     Dates: start: 20060816, end: 20070425
  2. FINASTERIDE [Suspect]
     Dosage: 5MG EVERY DAY PO
     Route: 048
     Dates: start: 20061011, end: 20070425

REACTIONS (3)
  - DYSURIA [None]
  - ILL-DEFINED DISORDER [None]
  - TREMOR [None]
